FAERS Safety Report 10260888 (Version 1)
Quarter: 2014Q2

REPORT INFORMATION
  Report Type: Spontaneous
  Country: GB (occurrence: GB)
  Receive Date: 20140626
  Receipt Date: 20140626
  Transmission Date: 20141212
  Serious: Yes (Death, Hospitalization)
  Sender: FDA-Public Use
  Company Number: PHHY2014GB077974

PATIENT
  Sex: Female

DRUGS (14)
  1. TOBI [Suspect]
     Indication: CYSTIC FIBROSIS
  2. PREDNISOLONE [Suspect]
  3. CEFTAZIDIME [Suspect]
  4. DEXAMETHASONE [Suspect]
  5. INSULIN [Suspect]
     Indication: GLUCOSE TOLERANCE IMPAIRED
  6. CREON [Suspect]
  7. VITAMAN [Suspect]
  8. PULMOZYME [Suspect]
  9. PROMIXIN//COLISTIMETHATE SODIUM [Suspect]
  10. ANTIBIOTICS [Suspect]
     Route: 042
  11. OSELTAMIVIR [Suspect]
  12. TIMANTIL [Suspect]
     Route: 042
  13. STEROID [Suspect]
  14. IMMUNOGLOBULIN I.V [Suspect]
     Dosage: UNK
     Route: 042

REACTIONS (19)
  - Death [Fatal]
  - Clostridium difficile colitis [Unknown]
  - Diarrhoea [Unknown]
  - Bronchopneumonia [Unknown]
  - C-reactive protein decreased [Unknown]
  - Intussusception [Unknown]
  - Abdominal pain [Unknown]
  - Abdominal distension [Unknown]
  - Blood lactic acid increased [Unknown]
  - Respiratory gas exchange disorder [Unknown]
  - Somnolence [Unknown]
  - Sputum retention [Unknown]
  - Influenza [Unknown]
  - Multi-organ failure [Unknown]
  - Liver function test abnormal [Unknown]
  - Organ failure [Unknown]
  - Respiratory failure [Unknown]
  - Maternal exposure during pregnancy [Unknown]
  - Normal newborn [Unknown]
